FAERS Safety Report 11407264 (Version 2)
Quarter: 2015Q3

REPORT INFORMATION
  Report Type: Spontaneous
  Country: GB (occurrence: GB)
  Receive Date: 20150821
  Receipt Date: 20150904
  Transmission Date: 20151125
  Serious: Yes (Death, Hospitalization)
  Sender: FDA-Public Use
  Company Number: PHFR2015GB006235

PATIENT
  Age: 57 Year
  Sex: Female

DRUGS (1)
  1. CLOZARIL [Suspect]
     Active Substance: CLOZAPINE
     Indication: SCHIZOPHRENIA
     Dosage: 100 MG, QD
     Route: 048
     Dates: start: 20080718

REACTIONS (4)
  - Progressive multiple sclerosis [Fatal]
  - Circulatory collapse [Fatal]
  - Chest pain [Fatal]
  - Schizophrenia [Fatal]

NARRATIVE: CASE EVENT DATE: 20150814
